FAERS Safety Report 16061224 (Version 1)
Quarter: 2019Q1

REPORT INFORMATION
  Report Type: Spontaneous
  Country: US (occurrence: US)
  Receive Date: 20190211
  Receipt Date: 20190211
  Transmission Date: 20190418
  Serious: No
  Sender: FDA-Public Use
  Company Number: None

PATIENT
  Sex: Female

DRUGS (1)
  1. PROLIA [Suspect]
     Active Substance: DENOSUMAB
     Indication: OSTEOPOROSIS
     Dosage: 60MG EVERY 6 MONTHS; SUBCUTANEOUSLY
     Route: 058
     Dates: start: 2017

REACTIONS (5)
  - Stomatitis [None]
  - Pain [None]
  - Fatigue [None]
  - Sinusitis [None]
  - Therapy cessation [None]
